FAERS Safety Report 8979239 (Version 2)
Quarter: 2014Q2

REPORT INFORMATION
  Report Type: Spontaneous
  Country: FR (occurrence: FR)
  Receive Date: 20121221
  Receipt Date: 20131204
  Transmission Date: 20141212
  Serious: Yes (Other)
  Sender: FDA-Public Use
  Company Number: FR-JNJFOC-20121207708

PATIENT
  Sex: Male

DRUGS (2)
  1. EDURANT [Suspect]
     Indication: HIV INFECTION
     Route: 048
  2. KIVEXA [Concomitant]
     Indication: HIV INFECTION

REACTIONS (4)
  - Hepatocellular injury [Unknown]
  - Aspartate aminotransferase increased [Unknown]
  - Chromaturia [Unknown]
  - Rash [Unknown]
